FAERS Safety Report 8575353 (Version 2)
Quarter: 2014Q1

REPORT INFORMATION
  Report Type: Spontaneous
  Country: US (occurrence: None)
  Receive Date: 20120323
  Receipt Date: 20130305
  Transmission Date: 20141002
  Serious: Yes (Hospitalization, Other)
  Sender: FDA-Public Use
  Company Number: 163-21880-11012133

PATIENT
  Age: 55 Year
  Sex: Female
  Weight: 92.08 kg

DRUGS (20)
  1. REVLIMID [Suspect]
     Indication: PLASMA CELL MYELOMA
     Dosage: 15 MG, DAILY FOR 21 DAYS OFF 7 DAYS, PO 15 MG, QD, PO 10 MG, QD, PO 5 MG, QD, PO
     Route: 048
     Dates: start: 201012
  2. VELCADE [Concomitant]
  3. HYDROCODONE (HYDROCODONE) [Concomitant]
  4. DECADRON [Concomitant]
  5. FEMHRT (ANOVLAR) [Concomitant]
  6. LEVOTHYROXINE SODIUM [Concomitant]
  7. SEROQUEL [Concomitant]
  8. SERTRALINE HCL (SERTRALINE HYDROCHLORIDE) [Concomitant]
  9. ACETAMINOPHEN\HYDROCODONE BITARTRATE [Concomitant]
  10. ALTACE [Concomitant]
  11. GABAPENTIN (GABAPENTIN) [Concomitant]
  12. LOMOTIL [Concomitant]
  13. ZOLPIDEM TARTRATE [Concomitant]
  14. FAMOTIDINE (FAMOTIDINE) [Concomitant]
  15. CEPHALEXIN (CEFALEXIN) [Concomitant]
  16. PROMETHAZINE (PROMETHAZINE) [Concomitant]
  17. FUROSEMIDE (FUROSEMIDE) [Concomitant]
  18. OXYCONTIN (OXYCODONE HYDROCHLORIDE) [Concomitant]
  19. POTASSIUM CHLORIDE (POTASSIUM CHLORIDE) [Concomitant]
  20. VANCOMYCIN (VANCOMYCIN) [Concomitant]

REACTIONS (3)
  - Deep vein thrombosis [None]
  - Haemoglobin decreased [None]
  - Pancytopenia [None]
